FAERS Safety Report 16582604 (Version 2)
Quarter: 2019Q3

REPORT INFORMATION
  Report Type: Spontaneous
  Country: IE (occurrence: IE)
  Receive Date: 20190717
  Receipt Date: 20190809
  Transmission Date: 20191004
  Serious: Yes (Death)
  Sender: FDA-Public Use
  Company Number: IE-ROCHE-2280239

PATIENT
  Age: 71 Year
  Sex: Female

DRUGS (2)
  1. ERIVEDGE [Suspect]
     Active Substance: VISMODEGIB
     Indication: OVARIAN CANCER
     Route: 048
     Dates: start: 20190325, end: 20190522
  2. ERIVEDGE [Suspect]
     Active Substance: VISMODEGIB
     Indication: METASTASES TO CENTRAL NERVOUS SYSTEM

REACTIONS (4)
  - Off label use [Unknown]
  - Product use in unapproved indication [Unknown]
  - Death [Fatal]
  - No adverse event [Unknown]

NARRATIVE: CASE EVENT DATE: 20190607
